FAERS Safety Report 20302840 (Version 1)
Quarter: 2022Q1

REPORT INFORMATION
  Report Type: Spontaneous
  Country: FR (occurrence: FR)
  Receive Date: 20220106
  Receipt Date: 20220106
  Transmission Date: 20220423
  Serious: Yes (Hospitalization, Other)
  Sender: FDA-Public Use
  Company Number: FR-AFSSAPS-TO20219574

PATIENT
  Age: 91 Year
  Sex: Female
  Weight: 57 kg

DRUGS (2)
  1. CLOPIDOGREL [Suspect]
     Active Substance: CLOPIDOGREL BISULFATE
     Indication: Abdominal compartment syndrome
     Dosage: 1 DOSAGE FORM, ONCE A DAY(1 CP LE MATIN )
     Route: 048
     Dates: start: 20210501, end: 20211104
  2. KARDEGIC [Suspect]
     Active Substance: ASPIRIN DL-LYSINE
     Indication: Abdominal compartment syndrome
     Dosage: 1 DOSAGE FORM, ONCE A DAY(75MG/J, AU LONG COURS )
     Route: 048

REACTIONS (2)
  - Melaena [Recovering/Resolving]
  - Rectal haemorrhage [Recovering/Resolving]

NARRATIVE: CASE EVENT DATE: 20211103
